FAERS Safety Report 14027653 (Version 1)
Quarter: 2017Q3

REPORT INFORMATION
  Report Type: Spontaneous
  Country: US (occurrence: US)
  Receive Date: 20170929
  Receipt Date: 20170929
  Transmission Date: 20171128
  Serious: No
  Sender: FDA-Public Use
  Company Number: US-PFIZER INC-2017418199

PATIENT
  Age: 58 Year
  Sex: Female

DRUGS (1)
  1. XELJANZ XR [Suspect]
     Active Substance: TOFACITINIB CITRATE
     Dosage: 11 MG, 1X/DAY (QD)
     Dates: start: 20170717

REACTIONS (5)
  - Blood potassium decreased [Unknown]
  - Blood pressure increased [Unknown]
  - Tachycardia [Unknown]
  - Drug dose omission [Unknown]
  - Insomnia [Unknown]
